FAERS Safety Report 8474373-7 (Version None)
Quarter: 2012Q2

REPORT INFORMATION
  Report Type: 
  Country: None (occurrence: None)
  Receive Date: 20120628
  Receipt Date: 20120112
  Transmission Date: 20120825
  Serious: Yes (Death, Hospitalization)
  Sender: FDA-Public Use
  Company Number: US-MYLANLABS-2011S1026084

PATIENT
  Age: 42 Year
  Sex: Female
  Weight: 117.48 kg

DRUGS (14)
  1. CLOZAPINE [Suspect]
     Indication: SCHIZOPHRENIA
     Route: 048
     Dates: start: 20080604, end: 20110101
  2. LATUDA [Concomitant]
  3. CLOZAPINE [Suspect]
     Indication: BORDERLINE PERSONALITY DISORDER
     Dosage: A.M. AND AT NOON
     Route: 048
     Dates: start: 20080604, end: 20110101
  4. CELEXA [Concomitant]
  5. VISTARIL [Concomitant]
  6. FLOVENT [Concomitant]
  7. ZOCOR [Concomitant]
  8. SINGULAIR [Concomitant]
  9. CLOZAPINE [Suspect]
     Indication: SCHIZOAFFECTIVE DISORDER
     Dosage: A.M. AND AT NOON
     Route: 048
     Dates: start: 20080604, end: 20110101
  10. WELLBUTRIN SR [Concomitant]
  11. NEXIUM [Concomitant]
  12. TOPAMAX [Concomitant]
  13. CELEXA [Concomitant]
  14. BYETTA [Concomitant]
     Indication: HYPOGLYCAEMIA

REACTIONS (2)
  - MYOCARDIAL INFARCTION [None]
  - PNEUMONIA [None]
